FAERS Safety Report 25151221 (Version 1)
Quarter: 2025Q2

REPORT INFORMATION
  Report Type: Spontaneous
  Country: US (occurrence: None)
  Receive Date: 20250402
  Receipt Date: 20250402
  Transmission Date: 20250717
  Serious: Yes (Other)
  Sender: FDA-CTU
  Company Number: None

PATIENT
  Age: 14 Year
  Sex: Male

DRUGS (1)
  1. EVEROLIMUS [Suspect]
     Active Substance: EVEROLIMUS
     Indication: Brain neoplasm malignant
     Dosage: FREQUENCY : DAILY;?

REACTIONS (1)
  - Tumour haemorrhage [None]
